FAERS Safety Report 23319965 (Version 1)
Quarter: 2023Q4

REPORT INFORMATION
  Report Type: Spontaneous
  Country: US (occurrence: US)
  Receive Date: 20231220
  Receipt Date: 20231220
  Transmission Date: 20240109
  Serious: No
  Sender: FDA-Public Use
  Company Number: US-ELI_LILLY_AND_COMPANY-US202312009620

PATIENT
  Sex: Female

DRUGS (2)
  1. MOUNJARO [Suspect]
     Active Substance: TIRZEPATIDE
     Indication: Type 2 diabetes mellitus
     Dosage: 12.5 MG, UNKNOWN
     Route: 058
     Dates: start: 202303
  2. LOSARTAN [Concomitant]
     Active Substance: LOSARTAN
     Indication: Blood pressure increased
     Dosage: 100 MG, UNKNOWN

REACTIONS (5)
  - Incorrect dose administered [Unknown]
  - Headache [Recovering/Resolving]
  - Food craving [Unknown]
  - Dizziness [Recovering/Resolving]
  - Fatigue [Recovering/Resolving]
